FAERS Safety Report 7590568-9 (Version None)
Quarter: 2011Q3

REPORT INFORMATION
  Report Type: 
  Country: None (occurrence: None)
  Receive Date: 20110705
  Receipt Date: 20110623
  Transmission Date: 20111222
  Serious: Yes (Hospitalization)
  Sender: FDA-Public Use
  Company Number: US-ELI_LILLY_AND_COMPANY-US201104008044

PATIENT
  Sex: Female
  Weight: 63 kg

DRUGS (2)
  1. FORTEO [Suspect]
     Indication: BONE DISORDER
     Dosage: 20 UG, QD
  2. FORTEO [Suspect]
     Dosage: 20 UG, QD

REACTIONS (2)
  - ARTHRALGIA [None]
  - KNEE ARTHROPLASTY [None]
